FAERS Safety Report 5097598-X (Version None)
Quarter: 2006Q3

REPORT INFORMATION
  Report Type: 
  Country: None (occurrence: None)
  Receive Date: 20060901
  Receipt Date: 20060828
  Transmission Date: 20061208
  Serious: Yes (Hospitalization)
  Sender: FDA-Public Use
  Company Number: FRWYE237615DEC05

PATIENT
  Age: 82 Year
  Sex: Male

DRUGS (12)
  1. EFFEXOR [Suspect]
     Indication: MAJOR DEPRESSION
     Dosage: SEE IMAGE
     Route: 048
     Dates: start: 20040501, end: 20050101
  2. EFFEXOR [Suspect]
     Indication: MAJOR DEPRESSION
     Dosage: SEE IMAGE
     Route: 048
     Dates: start: 20050101, end: 20060101
  3. EFFEXOR [Suspect]
     Indication: MAJOR DEPRESSION
     Dosage: SEE IMAGE
     Route: 048
     Dates: start: 20060101, end: 20060301
  4. EFFEXOR [Suspect]
     Indication: MAJOR DEPRESSION
     Dosage: SEE IMAGE
     Route: 048
     Dates: start: 20060301
  5. ASPIRIN [Suspect]
     Indication: ATRIAL FIBRILLATION
     Dosage: ORAL
     Route: 048
     Dates: start: 20040101, end: 20050901
  6. ORAL ANTICOAGULANT NOS (ORAL ANTICOAGULANT NOS, 0) [Suspect]
     Indication: ATRIAL FIBRILLATION
     Dosage: ORAL
     Route: 048
     Dates: start: 20000101, end: 20040101
  7. UNSPECIFIED ANTIHYPERTENSIVE AGENT (UNSPECIFIED ANTIHYPERTENSIVE AGENT [Concomitant]
  8. XANAX [Concomitant]
  9. ZOLPIDEM TARTRATE [Concomitant]
  10. MODOPAR (BENSERAZIDE HYDROCHLORIDE/LEVODOPA) [Concomitant]
  11. PERMIXON (SERENOA REPENS) [Concomitant]
  12. HEPT-A-MYL (HEPTAMINOL HYDROCHLORIDE) [Concomitant]

REACTIONS (5)
  - CEREBRAL HAEMATOMA [None]
  - CONFUSIONAL STATE [None]
  - FALL [None]
  - HAEMORRHAGIC STROKE [None]
  - VERTIGO [None]
